FAERS Safety Report 19443915 (Version 2)
Quarter: 2021Q4

REPORT INFORMATION
  Report Type: Report from Study
  Country: AU (occurrence: AU)
  Receive Date: 20210621
  Receipt Date: 20211207
  Transmission Date: 20220303
  Serious: Yes (Other)
  Sender: FDA-Public Use
  Company Number: AU-TAKEDA-2021TUS035762

PATIENT
  Age: 12 Year
  Sex: Male

DRUGS (6)
  1. IDURSULFASE [Suspect]
     Active Substance: IDURSULFASE
     Indication: Mucopolysaccharidosis II
     Dosage: 18 MILLIGRAM, 1/WEEK
     Route: 041
     Dates: start: 20180711
  2. IDURSULFASE [Suspect]
     Active Substance: IDURSULFASE
     Dosage: 8 MILLILITER
     Route: 041
     Dates: start: 20180711
  3. IDURSULFASE [Suspect]
     Active Substance: IDURSULFASE
     Dosage: 16 MILLILITER
     Route: 041
     Dates: start: 20180711
  4. IDURSULFASE [Suspect]
     Active Substance: IDURSULFASE
     Dosage: 24 MILLILITER
     Route: 041
     Dates: start: 20180711
  5. IDURSULFASE [Suspect]
     Active Substance: IDURSULFASE
     Dosage: 32 MILLILITER
     Route: 041
     Dates: start: 20180711
  6. IDURSULFASE [Suspect]
     Active Substance: IDURSULFASE
     Dosage: 40 MILLILITER
     Route: 041
     Dates: start: 20180711

REACTIONS (7)
  - Tonic convulsion [Recovered/Resolved]
  - Pleural rub [Recovering/Resolving]
  - Upper respiratory tract infection [Unknown]
  - Breath sounds abnormal [Recovered/Resolved]
  - Rhinorrhoea [Recovered/Resolved]
  - Upper respiratory tract congestion [Recovered/Resolved]
  - Cough [Recovered/Resolved]

NARRATIVE: CASE EVENT DATE: 20210526
